FAERS Safety Report 10090699 (Version 2)
Quarter: 2014Q3

REPORT INFORMATION
  Report Type: Spontaneous
  Country: US (occurrence: None)
  Receive Date: 20140417
  Receipt Date: 20140827
  Transmission Date: 20150326
  Serious: Yes (Other)
  Sender: FDA-Public Use
  Company Number: 1713747-2014-99949

PATIENT
  Age: 66 Year
  Sex: Male
  Weight: 94.3 kg

DRUGS (3)
  1. DELFLEX [Suspect]
     Active Substance: CALCIUM CHLORIDE\DEXTROSE MONOHYDRATE\MAGNESIUM CHLORIDE\SODIUM CHLORIDE\SODIUM LACTATE
     Indication: RENAL FAILURE CHRONIC
     Dosage: UNKNOWN
     Dates: start: 201402, end: 20140301
  2. LIBERTY CYCLER [Concomitant]
     Active Substance: DEVICE
  3. LIBERTY CYCLER SET [Concomitant]

REACTIONS (2)
  - Pseudomonas infection [None]
  - Peritonitis bacterial [None]

NARRATIVE: CASE EVENT DATE: 20140301
